FAERS Safety Report 14238876 (Version 4)
Quarter: 2018Q1

REPORT INFORMATION
  Report Type: Report from Study
  Country: IT (occurrence: IT)
  Receive Date: 20171130
  Receipt Date: 20180103
  Transmission Date: 20180508
  Serious: Yes (Hospitalization)
  Sender: FDA-Public Use
  Company Number: PHHO2017IT016129

PATIENT
  Age: 70 Year
  Sex: Female
  Weight: 63 kg

DRUGS (2)
  1. LETROZOLE. [Suspect]
     Active Substance: LETROZOLE
     Indication: BREAST CANCER
     Dosage: 3 MG, QD
     Route: 048
     Dates: start: 20171114, end: 20171121
  2. LEE011 [Suspect]
     Active Substance: RIBOCICLIB
     Indication: BREAST CANCER
     Dosage: 600 MG, QD
     Route: 048
     Dates: start: 20171114, end: 20171121

REACTIONS (2)
  - Gastric ulcer [Recovered/Resolved]
  - Sepsis [Recovered/Resolved]

NARRATIVE: CASE EVENT DATE: 20171121
